FAERS Safety Report 6161911-2 (Version None)
Quarter: 2009Q2

REPORT INFORMATION
  Report Type: 
  Country: None (occurrence: None)
  Receive Date: 20090421
  Receipt Date: 20090417
  Transmission Date: 20091009
  Serious: Yes (Other)
  Sender: FDA-Public Use
  Company Number: B0570761A

PATIENT
  Sex: Male

DRUGS (2)
  1. ORBENINE [Suspect]
     Dosage: 1G THREE TIMES PER DAY
     Route: 042
     Dates: start: 20090323, end: 20090326
  2. AMOXICILLIN TRIHYDRATE [Suspect]
     Dosage: 1G THREE TIMES PER DAY
     Route: 042
     Dates: start: 20090326, end: 20090327

REACTIONS (2)
  - RASH MACULO-PAPULAR [None]
  - THROAT IRRITATION [None]
